FAERS Safety Report 23934054 (Version 2)
Quarter: 2024Q4

REPORT INFORMATION
  Report Type: Spontaneous
  Country: ES (occurrence: ES)
  Receive Date: 20240603
  Receipt Date: 20241024
  Transmission Date: 20250114
  Serious: Yes (Other)
  Sender: PFIZER
  Company Number: ES-ROCHE-3376727

PATIENT
  Age: 62 Year
  Sex: Male
  Weight: 85.3 kg

DRUGS (22)
  1. PEMETREXED [Suspect]
     Active Substance: PEMETREXED
     Indication: Non-small cell lung cancer metastatic
     Dosage: 958 MG, EVERY 3 WEEKS
     Route: 042
     Dates: start: 20210712
  2. CARBOPLATIN [Suspect]
     Active Substance: CARBOPLATIN
     Indication: Non-small cell lung cancer metastatic
     Dosage: 702 MG, EVERY 3 WEEKS
     Route: 042
     Dates: start: 20210712
  3. PEMBROLIZUMAB [Suspect]
     Active Substance: PEMBROLIZUMAB
     Indication: Non-small cell lung cancer metastatic
     Dosage: RECEIVED MOST RECENT DOSE OF ATEZOLIZUMAB PRIOR TO AE, EVERY 3 WEEKS
     Route: 042
     Dates: start: 20230607
  4. PEMBROLIZUMAB [Suspect]
     Active Substance: PEMBROLIZUMAB
     Dosage: UNK, EVERY 3 WEEKS
     Route: 042
     Dates: start: 20210712
  5. ATEZOLIZUMAB [Suspect]
     Active Substance: ATEZOLIZUMAB
     Indication: Non-small cell lung cancer metastatic
     Dosage: RECEIVED MOST RECENT DOSE OF ATEZOLIZUMAB PRIOR TO AE, EVERY 3 WEEKS
     Route: 042
     Dates: start: 20230607
  6. ATEZOLIZUMAB [Suspect]
     Active Substance: ATEZOLIZUMAB
     Dosage: UNK, EVERY 3 WEEKS
     Route: 042
     Dates: start: 20210712
  7. TIRAGOLUMAB [Suspect]
     Active Substance: TIRAGOLUMAB
     Indication: Non-small cell lung cancer metastatic
     Dosage: MOST RECENT DOSE OF BLINDED TIRAGOLUMAB PRIOR TO AE, EVERY 3 WEEKS
     Route: 042
     Dates: start: 20230607
  8. TIRAGOLUMAB [Suspect]
     Active Substance: TIRAGOLUMAB
     Dosage: UNK
     Route: 042
     Dates: start: 20210712
  9. PYRIDOXINE HYDROCHLORIDE [Concomitant]
     Active Substance: PYRIDOXINE HYDROCHLORIDE
     Indication: Prophylactic chemotherapy
     Dosage: 300 MG, 1X/DAY
     Route: 048
     Dates: start: 20210707
  10. GRANISETRON [Concomitant]
     Active Substance: GRANISETRON
     Dosage: 1 MG, EVERY 3 WEEKS
     Route: 048
     Dates: start: 20210712
  11. CIANOCOBALAMINA [Concomitant]
     Dosage: 1000 MG, MONTHLY
     Route: 030
     Dates: start: 20210707
  12. PEMETREXED [Concomitant]
     Active Substance: PEMETREXED
     Dates: start: 20240207, end: 20240207
  13. DEXAMETHASONE [Concomitant]
     Active Substance: DEXAMETHASONE
     Dosage: 8 MG, EVERY 3 WEEKS
     Route: 048
     Dates: start: 20210714
  14. DEXAMETHASONE [Concomitant]
     Active Substance: DEXAMETHASONE
     Dosage: 4 MG, EVERY 3 WEEKS
     Route: 048
     Dates: start: 20210711
  15. GABAPENTIN [Concomitant]
     Active Substance: GABAPENTIN
     Indication: Pain
     Dosage: 300 MG, 1X/DAY
     Route: 048
     Dates: start: 20210630
  16. THIAMINE HYDROCHLORIDE [Concomitant]
     Active Substance: THIAMINE HYDROCHLORIDE
     Dosage: 300 MG, 1X/DAY
     Route: 048
     Dates: start: 20210707
  17. MORPHINE [Concomitant]
     Active Substance: MORPHINE
     Indication: Pain
     Dosage: 40 MG, 2X/DAY
     Route: 048
     Dates: start: 20211025
  18. METAMIZOL [Concomitant]
     Active Substance: METAMIZOLE SODIUM
     Indication: Pain
     Dosage: 575 MG, 1X/DAY
     Route: 048
     Dates: start: 20210615
  19. OMEPRAZOLE [Concomitant]
     Active Substance: OMEPRAZOLE
     Dosage: 40 MG, 1X/DAY
     Route: 048
     Dates: start: 20210610
  20. PEMBROLIZUMAB [Concomitant]
     Active Substance: PEMBROLIZUMAB
     Dates: start: 20240207, end: 20240207
  21. ZOLICO [FOLIC ACID] [Concomitant]
     Dosage: 400 MG, 1X/DAY
     Route: 048
     Dates: start: 20210707
  22. CARBOPLATIN [Concomitant]
     Active Substance: CARBOPLATIN
     Dates: start: 20240207, end: 20240207

REACTIONS (2)
  - Pemphigoid [Recovering/Resolving]
  - Off label use [Unknown]

NARRATIVE: CASE EVENT DATE: 20210712
